FAERS Safety Report 8996182 (Version 1)
Quarter: 2013Q1

REPORT INFORMATION
  Report Type: Spontaneous
  Country: CN (occurrence: CN)
  Receive Date: 20130103
  Receipt Date: 20130103
  Transmission Date: 20140127
  Serious: Yes (Other)
  Sender: FDA-Public Use
  Company Number: CN-ABBOTT-12P-035-1029453-00

PATIENT
  Age: 45 Year
  Sex: Female

DRUGS (4)
  1. DEPAKINE CHRONO [Suspect]
     Indication: EPILEPSY
     Route: 048
     Dates: start: 201112, end: 201207
  2. DEPAKINE CHRONO [Suspect]
     Route: 048
     Dates: start: 201207
  3. PHENYTOIN SODIUM [Concomitant]
     Indication: PRODUCT USED FOR UNKNOWN INDICATION
     Dates: start: 201206
  4. PANTOPRAZOLE [Concomitant]
     Indication: PRODUCT USED FOR UNKNOWN INDICATION

REACTIONS (5)
  - Epilepsy [Recovered/Resolved]
  - Trismus [Unknown]
  - Foaming at mouth [Unknown]
  - Tremor [Unknown]
  - Loss of consciousness [Unknown]
